FAERS Safety Report 4289921-0 (Version None)
Quarter: 2004Q1

REPORT INFORMATION
  Report Type: 
  Country: None (occurrence: None)
  Receive Date: 20040209
  Receipt Date: 20040130
  Transmission Date: 20041129
  Serious: Yes (Death, Hospitalization)
  Sender: FDA-Public Use
  Company Number: 200411458GDDC

PATIENT
  Age: 68 Year
  Sex: Male

DRUGS (7)
  1. CLAFORAN [Suspect]
     Indication: INFECTION PROPHYLAXIS
     Route: 051
     Dates: start: 20040128, end: 20040128
  2. DIAMICRON [Concomitant]
     Indication: DIABETES MELLITUS
     Route: 048
     Dates: start: 20040127, end: 20040127
  3. RENITEC [Concomitant]
     Indication: HYPERTENSION
     Route: 048
     Dates: start: 20040127, end: 20040128
  4. ATENOLOL [Concomitant]
     Indication: HYPERTENSION
     Route: 048
     Dates: start: 20040127, end: 20040128
  5. NORVASC [Concomitant]
     Indication: HYPERTENSION
     Route: 048
     Dates: start: 20040127, end: 20040128
  6. PEPCIDINE [Concomitant]
     Indication: DYSPEPSIA
     Route: 048
     Dates: start: 20040127, end: 20040128
  7. HUMAN MONOTARD [Concomitant]
     Indication: DIABETES MELLITUS
     Route: 058
     Dates: start: 20040127, end: 20040127

REACTIONS (5)
  - CARDIAC ARREST [None]
  - CHEST DISCOMFORT [None]
  - DEATH [None]
  - HYPOAESTHESIA [None]
  - INJECTION SITE PAIN [None]
